FAERS Safety Report 6819877-5 (Version None)
Quarter: 2010Q3

REPORT INFORMATION
  Report Type: 
  Country: None (occurrence: None)
  Receive Date: 20100707
  Receipt Date: 20100624
  Transmission Date: 20110219
  Serious: Yes (Other)
  Sender: FDA-Public Use
  Company Number: ES-ELI_LILLY_AND_COMPANY-ES201007000040

PATIENT
  Sex: Female

DRUGS (9)
  1. FORTEO [Suspect]
     Indication: OSTEOPOROSIS
     Dosage: 20 UG, DAILY (1/D)
     Route: 058
     Dates: start: 20100520
  2. LEVOTHYROXINE SODIUM [Concomitant]
     Indication: THYROID DISORDER
     Dosage: 175 MG, EACH MORNING
     Route: 048
  3. OMEPRAZOLE [Concomitant]
     Indication: PROPHYLAXIS
     Dosage: 1 D/F, EACH MORNING
     Route: 048
  4. LANTUS [Concomitant]
     Indication: DIABETES MELLITUS
     Dosage: 62 IU, EACH MORNING
     Route: 058
  5. TEVETEN [Concomitant]
     Indication: HYPERTENSION
     Dosage: 600 MG, DAILY (1/D)
     Route: 048
  6. RAMIPRIL [Concomitant]
     Indication: HYPERTENSION
     Dosage: 20 MG, DAILY (1/D)
     Route: 048
  7. SECALIP [Concomitant]
     Indication: HYPERCHOLESTEROLAEMIA
     Dosage: 145 MG, DAILY (1/D)
     Route: 048
  8. INSULIN GLULISINE [Concomitant]
     Indication: DIABETES MELLITUS
     Dosage: 1 D/F, 2/D
  9. TRAMADOL [Concomitant]
     Indication: PAIN
     Dosage: 1 D/F, AS NEEDED
     Route: 048

REACTIONS (2)
  - DEPRESSED LEVEL OF CONSCIOUSNESS [None]
  - DIZZINESS [None]
